FAERS Safety Report 10770025 (Version 2)
Quarter: 2015Q3

REPORT INFORMATION
  Report Type: Spontaneous
  Country: US (occurrence: US)
  Receive Date: 20150206
  Receipt Date: 20150722
  Transmission Date: 20151125
  Serious: Yes (Death, Hospitalization)
  Sender: FDA-Public Use
  Company Number: US-JNJFOC-20150201580

PATIENT
  Age: 66 Year
  Sex: Female

DRUGS (1)
  1. XARELTO [Suspect]
     Active Substance: RIVAROXABAN
     Indication: PULMONARY EMBOLISM
     Route: 048
     Dates: start: 20140329, end: 20140806

REACTIONS (5)
  - Death [Fatal]
  - Cholecystitis acute [Fatal]
  - Shock haemorrhagic [Fatal]
  - Internal haemorrhage [Fatal]
  - Chronic kidney disease [Unknown]

NARRATIVE: CASE EVENT DATE: 2014
